FAERS Safety Report 24887774 (Version 1)
Quarter: 2025Q1

REPORT INFORMATION
  Report Type: Spontaneous
  Country: US (occurrence: US)
  Receive Date: 20250127
  Receipt Date: 20250127
  Transmission Date: 20250409
  Serious: No
  Sender: CHIESI
  Company Number: US-CHIESI-2024CHF05757

PATIENT
  Sex: Female

DRUGS (1)
  1. ZYFLO [Suspect]
     Active Substance: ZILEUTON
     Indication: Product used for unknown indication
     Dosage: 24 MILLIGRAM, BID
     Route: 048
     Dates: start: 2018

REACTIONS (4)
  - Cough [Not Recovered/Not Resolved]
  - Asthma [Not Recovered/Not Resolved]
  - Product dose omission issue [Unknown]
  - Off label use [Not Recovered/Not Resolved]

NARRATIVE: CASE EVENT DATE: 20180101
